FAERS Safety Report 6746712-6 (Version None)
Quarter: 2010Q2

REPORT INFORMATION
  Report Type: 
  Country: None (occurrence: None)
  Receive Date: 20100528
  Receipt Date: 20090615
  Transmission Date: 20101027
  Serious: No
  Sender: FDA-Public Use
  Company Number: A0780763A

PATIENT
  Age: 74 Year
  Sex: Female

DRUGS (10)
  1. VENTOLIN [Suspect]
     Indication: CHRONIC OBSTRUCTIVE PULMONARY DISEASE
     Dosage: 2PUFF PER DAY
     Route: 055
  2. UNKNOWN MEDICATION [Concomitant]
  3. METFORMIN HYDROCHLORIDE [Concomitant]
  4. PERCOCET [Concomitant]
  5. METHIMAZOLE [Concomitant]
  6. SENNA [Concomitant]
  7. LISINOPRIL [Concomitant]
  8. NEXIUM [Concomitant]
  9. BISACODYL [Concomitant]
  10. DIGOXIN [Concomitant]

REACTIONS (5)
  - BREATH SOUNDS ABNORMAL [None]
  - DYSPNOEA [None]
  - PRODUCT QUALITY ISSUE [None]
  - RESPIRATION ABNORMAL [None]
  - WHEEZING [None]
